FAERS Safety Report 6411850-4 (Version None)
Quarter: 2009Q4

REPORT INFORMATION
  Report Type: 
  Country: None (occurrence: None)
  Receive Date: 20091020
  Receipt Date: 20091007
  Transmission Date: 20100525
  Serious: Yes (Hospitalization, Other)
  Sender: FDA-Public Use
  Company Number: 2009AC000166

PATIENT
  Age: 86 Year
  Sex: Female

DRUGS (28)
  1. DIGOXIN [Suspect]
     Dosage: 0.125 MG; QD; PO
     Route: 048
  2. DIGOXIN [Suspect]
     Dosage: 0.25 MG; PO
     Route: 048
  3. LIPITOR [Concomitant]
  4. SPIRONOLACTONE [Concomitant]
  5. SIMVASTATIN [Concomitant]
  6. ASPIRIN [Concomitant]
  7. VIT B12 [Concomitant]
  8. METOPROLOL [Concomitant]
  9. FOLIC ACID [Concomitant]
  10. PANTOPRAZOLE [Concomitant]
  11. ACCUPRIL [Concomitant]
  12. ZOCOR [Concomitant]
  13. ROCEPHIN [Concomitant]
  14. TOPROL-XL [Concomitant]
  15. LYOFOAM [Concomitant]
  16. ZOFRAN [Concomitant]
  17. TYLENOL [Concomitant]
  18. CO-GESIC [Concomitant]
  19. LASIX [Concomitant]
  20. K-DUR [Concomitant]
  21. COUMADIN [Concomitant]
  22. PREDNISONE [Concomitant]
  23. ALBUTEROL [Concomitant]
  24. LIVOSTIN [Concomitant]
  25. ERYTHROMYCIN [Concomitant]
  26. HYDROCODONE [Concomitant]
  27. AMOXICILLIN [Concomitant]
  28. NITROGLYCERIN [Concomitant]

REACTIONS (18)
  - ANAEMIA [None]
  - ARTHRITIS [None]
  - ASTHENIA [None]
  - CARDIOACTIVE DRUG LEVEL INCREASED [None]
  - DECREASED APPETITE [None]
  - DYSPNOEA [None]
  - ECONOMIC PROBLEM [None]
  - FACE INJURY [None]
  - FALL [None]
  - FATIGUE [None]
  - ILL-DEFINED DISORDER [None]
  - JOINT STIFFNESS [None]
  - MULTIPLE INJURIES [None]
  - OEDEMA PERIPHERAL [None]
  - RENAL FAILURE [None]
  - SURGERY [None]
  - VENTRICULAR TACHYCARDIA [None]
  - WEIGHT DECREASED [None]
